FAERS Safety Report 8471207-1 (Version None)
Quarter: 2012Q2

REPORT INFORMATION
  Report Type: 
  Country: None (occurrence: None)
  Receive Date: 20120627
  Receipt Date: 20120620
  Transmission Date: 20120825
  Serious: Yes (Death)
  Sender: FDA-Public Use
  Company Number: AU-PFIZER INC-2012148842

PATIENT
  Sex: Male

DRUGS (2)
  1. VFEND [Suspect]
     Indication: SCEDOSPORIUM INFECTION
     Dosage: UNK
     Route: 042
  2. CASPOFUNGIN [Concomitant]

REACTIONS (4)
  - SCEDOSPORIUM INFECTION [None]
  - LIVER FUNCTION TEST ABNORMAL [None]
  - TOXICITY TO VARIOUS AGENTS [None]
  - DRUG LEVEL BELOW THERAPEUTIC [None]
